FAERS Safety Report 21810312 (Version 1)
Quarter: 2023Q1

REPORT INFORMATION
  Report Type: Spontaneous
  Country: US (occurrence: None)
  Receive Date: 20230101
  Receipt Date: 20230101
  Transmission Date: 20230417
  Serious: Yes (Other)
  Sender: FDA-Public Use
  Company Number: None

PATIENT
  Age: 31 Year
  Sex: Female

DRUGS (2)
  1. TIXAGEVIMAB [Suspect]
     Active Substance: TIXAGEVIMAB
     Indication: COVID-19
     Dosage: OTHER FREQUENCY : ONCE;?
     Route: 030
     Dates: start: 20221130, end: 20221130
  2. CILGAVIMAB [Suspect]
     Active Substance: CILGAVIMAB
     Indication: COVID-19
     Dosage: OTHER FREQUENCY : ONCE;?
     Route: 030
     Dates: start: 20221130, end: 20221130

REACTIONS (2)
  - Rash [None]
  - Autoimmune disorder [None]

NARRATIVE: CASE EVENT DATE: 20221201
